FAERS Safety Report 20371300 (Version 1)
Quarter: 2022Q1

REPORT INFORMATION
  Report Type: Spontaneous
  Country: JP (occurrence: JP)
  Receive Date: 20220124
  Receipt Date: 20220124
  Transmission Date: 20220423
  Serious: Yes (Other)
  Sender: FDA-Public Use
  Company Number: JP-GILEAD-2022-0566133

PATIENT
  Age: 43 Year
  Sex: Male

DRUGS (6)
  1. VEKLURY [Suspect]
     Active Substance: REMDESIVIR
     Indication: COVID-19
     Dosage: 200 MG
     Route: 041
  2. VEKLURY [Suspect]
     Active Substance: REMDESIVIR
     Dosage: 100 MG
     Route: 041
  3. DEXAMETHASONE [Concomitant]
     Active Substance: DEXAMETHASONE
     Indication: COVID-19
     Dosage: 6 MG
  4. AMLODIPINE BESYLATE [Concomitant]
     Active Substance: AMLODIPINE BESYLATE
     Dosage: 5 MG, QD
  5. VALSARTAN [Concomitant]
     Active Substance: VALSARTAN
     Dosage: 80 MG, QD
  6. FEBUXOSTAT [Concomitant]
     Active Substance: FEBUXOSTAT
     Dosage: 20 MG, QD

REACTIONS (2)
  - Paroxysmal atrioventricular block [Unknown]
  - Atrioventricular block complete [Unknown]
